FAERS Safety Report 9519323 (Version 1)
Quarter: 2013Q1

REPORT INFORMATION
  Report Type: Spontaneous
  Country: US (occurrence: None)
  Receive Date: 20130305
  Receipt Date: 20130305
  Transmission Date: 20140127
  Serious: Yes (Death, Hospitalization)
  Sender: FDA-Public Use
  Company Number: 163-21880-12081247

PATIENT
  Age: 66 Year
  Sex: Female

DRUGS (8)
  1. REVLIMID [Suspect]
     Indication: PLASMA CELL MYELOMA
     Dosage: 10 MG, 21 IN 28 D, PO
     Route: 048
     Dates: start: 201107
  2. PRILOSEC (OMEPRAZOLE) (UNKNOWN) [Concomitant]
  3. ZOMETA (ZOLEDRONIC ACID) (UNKNOWN) [Concomitant]
  4. COUMADIN (WARFARIN SODIUM) [Concomitant]
  5. BACTRIM (BACTRIM) (UNKNOWN) [Concomitant]
  6. VALTREX (VALACICLOVIR HYDROCHLORIDE) (UNKNOWN) [Concomitant]
  7. VITAMIN K (PHYTOMENADIONE) (UNKNOWN) [Concomitant]
  8. PAMIDRONATE (PAMIDRONATE DISODIUM) (UNKNOWN) [Concomitant]

REACTIONS (2)
  - Cerebrovascular accident [None]
  - Pneumonia [None]
